FAERS Safety Report 12392050 (Version 1)
Quarter: 2016Q2

REPORT INFORMATION
  Report Type: Spontaneous
  Country: US (occurrence: US)
  Receive Date: 20160523
  Receipt Date: 20160523
  Transmission Date: 20160815
  Serious: No
  Sender: FDA-Public Use
  Company Number: US-HORIZON-RAV-0094-2016

PATIENT
  Age: 33 Year
  Sex: Female

DRUGS (3)
  1. RAVICTI [Suspect]
     Active Substance: GLYCEROL PHENYLBUTYRATE
     Indication: ORNITHINE TRANSCARBAMOYLASE DEFICIENCY
     Dosage: 4.5 ML TID
  2. LEVOCARNITINE. [Concomitant]
     Active Substance: LEVOCARNITINE
  3. CITRULLINE [Concomitant]
     Active Substance: CITRULLINE

REACTIONS (1)
  - Exposure during pregnancy [Unknown]
